FAERS Safety Report 7796962-5 (Version None)
Quarter: 2011Q4

REPORT INFORMATION
  Report Type: 
  Country: None (occurrence: None)
  Receive Date: 20111005
  Receipt Date: 20110929
  Transmission Date: 20120403
  Serious: Yes (Death)
  Sender: FDA-Public Use
  Company Number: US-SANOFI-AVENTIS-2011SA063870

PATIENT
  Sex: Male

DRUGS (6)
  1. JEVTANA KIT [Suspect]
     Route: 041
     Dates: start: 20100723, end: 20100723
  2. JEVTANA KIT [Suspect]
     Route: 041
     Dates: start: 20100903, end: 20100903
  3. JEVTANA KIT [Suspect]
     Route: 041
     Dates: start: 20100924, end: 20100924
  4. JEVTANA KIT [Suspect]
     Route: 041
     Dates: start: 20101015, end: 20101015
  5. JEVTANA KIT [Suspect]
     Indication: PROSTATE CANCER
     Route: 041
     Dates: start: 20100702, end: 20100702
  6. JEVTANA KIT [Suspect]
     Route: 041
     Dates: start: 20100813, end: 20100813

REACTIONS (1)
  - DEATH [None]
